FAERS Safety Report 8816443 (Version 1)
Quarter: 2012Q4

REPORT INFORMATION
  Report Type: Spontaneous
  Country: IT (occurrence: None)
  Receive Date: 20120927
  Receipt Date: 20120927
  Transmission Date: 20130627
  Serious: Yes (Hospitalization)
  Sender: FDA-Public Use
  Company Number: IT-GDP-12415097

PATIENT
  Age: 56 Year
  Sex: Male

DRUGS (8)
  1. METRONIDAZOLE [Suspect]
     Indication: ROSACEA
     Route: 061
     Dates: start: 20120429, end: 20120506
  2. ASPIRIN [Concomitant]
  3. CRESTOR  /01588901/ [Concomitant]
  4. ESKIM [Concomitant]
  5. CONGESCOR [Concomitant]
  6. ADVANTAN [Concomitant]
  7. LOSAPREX [Concomitant]
  8. COSMETICS [Concomitant]

REACTIONS (4)
  - Eyelid oedema [None]
  - Skin reaction [None]
  - Skin lesion [None]
  - Urticaria [None]
